FAERS Safety Report 6597167-6 (Version None)
Quarter: 2010Q1

REPORT INFORMATION
  Report Type: 
  Country: None (occurrence: None)
  Receive Date: 20100212
  Receipt Date: 20100201
  Transmission Date: 20100710
  Serious: Yes (Other)
  Sender: FDA-Public Use
  Company Number: 2008SP022468

PATIENT
  Age: 55 Year
  Sex: Female

DRUGS (3)
  1. PEG-INTRON [Suspect]
     Indication: HEPATITIS C
     Dosage: ; SC
     Route: 058
     Dates: start: 20081031, end: 20100109
  2. RIBAPAK [Suspect]
     Indication: HEPATITIS C
     Dosage: ; PO
     Route: 048
     Dates: start: 20081031, end: 20090901
  3. RIBAVIRIN [Suspect]
     Indication: HEPATITIS C
     Dosage: ; PO
     Route: 048
     Dates: start: 20090901, end: 20100109

REACTIONS (29)
  - ABDOMINAL PAIN UPPER [None]
  - AMNESIA [None]
  - ANAEMIA [None]
  - CHILLS [None]
  - CONDITION AGGRAVATED [None]
  - CONSTIPATION [None]
  - DECREASED APPETITE [None]
  - DEPRESSION [None]
  - DYSGEUSIA [None]
  - DYSPNOEA [None]
  - FATIGUE [None]
  - FEELING OF BODY TEMPERATURE CHANGE [None]
  - HYPOPHAGIA [None]
  - IRRITABILITY [None]
  - MENTAL DISORDER [None]
  - MOUTH HAEMORRHAGE [None]
  - NAUSEA [None]
  - NERVOUSNESS [None]
  - ORAL PAIN [None]
  - PAIN [None]
  - PARANOIA [None]
  - RECTAL HAEMORRHAGE [None]
  - SKIN DISCOLOURATION [None]
  - SOCIAL AVOIDANT BEHAVIOUR [None]
  - THROMBOSIS [None]
  - TOOTH LOSS [None]
  - TOOTHACHE [None]
  - VIRAL LOAD INCREASED [None]
  - VISION BLURRED [None]
